FAERS Safety Report 6501928-9 (Version None)
Quarter: 2009Q4

REPORT INFORMATION
  Report Type: 
  Country: None (occurrence: None)
  Receive Date: 20091216
  Receipt Date: 20091207
  Transmission Date: 20100525
  Serious: Yes (Hospitalization)
  Sender: FDA-Public Use
  Company Number: DE-SANOFI-AVENTIS-2009SA008658

PATIENT
  Age: 57 Year

DRUGS (6)
  1. OXALIPLATIN [Suspect]
     Indication: COLON CANCER
     Route: 041
     Dates: start: 20080610, end: 20080610
  2. OXALIPLATIN [Suspect]
     Route: 041
     Dates: start: 20080708, end: 20080708
  3. FLUOROURACIL [Suspect]
     Indication: COLON CANCER
     Route: 041
     Dates: start: 20080610, end: 20080610
  4. FLUOROURACIL [Suspect]
     Route: 041
     Dates: start: 20080709, end: 20080709
  5. FOLINIC ACID [Suspect]
     Indication: COLON CANCER
     Route: 041
     Dates: start: 20080610, end: 20080610
  6. FOLINIC ACID [Suspect]
     Route: 041
     Dates: start: 20080709, end: 20080709

REACTIONS (7)
  - ABDOMINAL PAIN [None]
  - BILE DUCT STONE [None]
  - DEHYDRATION [None]
  - DIARRHOEA [None]
  - NAUSEA [None]
  - ORAL DISCOMFORT [None]
  - PANCREATITIS [None]
